FAERS Safety Report 14554010 (Version 1)
Quarter: 2018Q1

REPORT INFORMATION
  Report Type: Report from Study
  Country: US (occurrence: US)
  Receive Date: 20180220
  Receipt Date: 20180220
  Transmission Date: 20180509
  Serious: Yes (Other)
  Sender: FDA-Public Use
  Company Number: US-JNJFOC-20180225305

PATIENT
  Age: 67 Year
  Sex: Male

DRUGS (18)
  1. NIFEDIPINE. [Concomitant]
     Active Substance: NIFEDIPINE
  2. PROMETHAZINE [Concomitant]
     Active Substance: PROMETHAZINE\PROMETHAZINE HYDROCHLORIDE
  3. ASCORBIC ACID. [Concomitant]
     Active Substance: ASCORBIC ACID
  4. MICRO-K [Concomitant]
     Active Substance: POTASSIUM CHLORIDE
  5. IMBRUVICA [Suspect]
     Active Substance: IBRUTINIB
     Indication: CHRONIC LYMPHOCYTIC LEUKAEMIA
     Route: 048
     Dates: start: 20161224
  6. XANAX [Concomitant]
     Active Substance: ALPRAZOLAM
  7. METFORMIN [Concomitant]
     Active Substance: METFORMIN HYDROCHLORIDE
  8. HYOSCYAMINE. [Concomitant]
     Active Substance: HYOSCYAMINE
  9. DEXAMETHASONE. [Concomitant]
     Active Substance: DEXAMETHASONE
  10. POTASSIUM [Concomitant]
     Active Substance: POTASSIUM
  11. KADIAN [Concomitant]
     Active Substance: MORPHINE SULFATE
  12. AMLODIPINE [Concomitant]
     Active Substance: AMLODIPINE BESYLATE
  13. NEXIUM [Concomitant]
     Active Substance: ESOMEPRAZOLE MAGNESIUM
  14. NORCO [Concomitant]
     Active Substance: ACETAMINOPHEN\HYDROCODONE BITARTRATE
  15. VITAMIN D [Concomitant]
     Active Substance: CHOLECALCIFEROL
  16. FERROUS SULFATE. [Concomitant]
     Active Substance: FERROUS SULFATE
  17. ZOFRAN [Concomitant]
     Active Substance: ONDANSETRON HYDROCHLORIDE
  18. LORAZEPAM. [Concomitant]
     Active Substance: LORAZEPAM

REACTIONS (3)
  - Cerebrovascular accident [Unknown]
  - Off label use [Unknown]
  - Incorrect dose administered [Unknown]

NARRATIVE: CASE EVENT DATE: 20161224
